FAERS Safety Report 4372450-3 (Version None)
Quarter: 2004Q2

REPORT INFORMATION
  Report Type: 
  Country: None (occurrence: None)
  Receive Date: 20040603
  Receipt Date: 20040517
  Transmission Date: 20050107
  Serious: Yes (Hospitalization)
  Sender: FDA-Public Use
  Company Number: USA-2004-0014572

PATIENT
  Age: 68 Year
  Sex: Female

DRUGS (2)
  1. CEFDITOREN PIVOXIL (SIMILAR TO NDA 21-222) (CEFDITOREN PIVOXIL) [Suspect]
     Indication: INFLAMMATION
     Dosage: 100 MG, TID, ORAL
     Route: 048
     Dates: start: 20040410, end: 20040410
  2. VOLTAREN [Concomitant]
     Indication: INFLAMMATION
     Dosage: 25 MG, TID, ORAL
     Route: 048
     Dates: start: 20040410, end: 20040410

REACTIONS (3)
  - EXANTHEM [None]
  - NAUSEA [None]
  - PRURITUS [None]
